FAERS Safety Report 4825952-7 (Version None)
Quarter: 2005Q4

REPORT INFORMATION
  Report Type: 
  Country: None (occurrence: None)
  Receive Date: 20051014
  Receipt Date: 20050623
  Transmission Date: 20060501
  Serious: No
  Sender: FDA-Public Use
  Company Number: 2005SP001765

PATIENT
  Age: 86 Year
  Sex: Female

DRUGS (2)
  1. LUNESTA [Suspect]
     Indication: INSOMNIA
     Dosage: 1 MG HS ORAL; 2 MG HS ORAL
     Route: 048
     Dates: start: 20050601, end: 20050601
  2. LUNESTA [Suspect]
     Indication: INSOMNIA
     Dosage: 1 MG HS ORAL; 2 MG HS ORAL
     Route: 048
     Dates: start: 20050601

REACTIONS (2)
  - DRUG INEFFECTIVE [None]
  - INSOMNIA [None]
